FAERS Safety Report 12971568 (Version 2)
Quarter: 2016Q4

REPORT INFORMATION
  Report Type: Spontaneous
  Country: US (occurrence: US)
  Receive Date: 20161123
  Receipt Date: 20161216
  Transmission Date: 20170207
  Serious: No
  Sender: FDA-Public Use
  Company Number: US-JAZZ-2016-US-019870

PATIENT
  Sex: Female

DRUGS (14)
  1. LEXAPRO [Concomitant]
     Active Substance: ESCITALOPRAM OXALATE
  2. VITAMIN D                          /00107901/ [Concomitant]
     Active Substance: ERGOCALCIFEROL
  3. IBUPROFEN. [Concomitant]
     Active Substance: IBUPROFEN
  4. VENTOLIN [Concomitant]
     Active Substance: ALBUTEROL SULFATE
  5. XYREM [Suspect]
     Active Substance: SODIUM OXYBATE
     Indication: NARCOLEPSY
     Dosage: 2.25 G, BID
     Route: 048
     Dates: start: 201510, end: 2015
  6. TESSALON [Suspect]
     Active Substance: BENZONATATE
     Indication: COUGH
  7. NUVIGIL [Concomitant]
     Active Substance: ARMODAFINIL
  8. XYREM [Suspect]
     Active Substance: SODIUM OXYBATE
     Dosage: 2.25 G, BID
     Route: 048
     Dates: start: 201610
  9. FLONASE                            /00908302/ [Concomitant]
     Active Substance: MOMETASONE FUROATE
  10. VITAMIN D3 [Concomitant]
     Active Substance: CHOLECALCIFEROL
  11. XYREM [Suspect]
     Active Substance: SODIUM OXYBATE
     Dosage: DOSE ADJUSTMENT
     Route: 048
     Dates: start: 201511, end: 201608
  12. IMITREX [Concomitant]
     Active Substance: SUMATRIPTAN SUCCINATE
  13. ROBAXIN-750 [Concomitant]
  14. VYVANSE [Concomitant]
     Active Substance: LISDEXAMFETAMINE DIMESYLATE

REACTIONS (2)
  - Upper respiratory tract infection [Unknown]
  - Drug ineffective [Unknown]
